FAERS Safety Report 8481179-1 (Version None)
Quarter: 2012Q3

REPORT INFORMATION
  Report Type: 
  Country: None (occurrence: None)
  Receive Date: 20120702
  Receipt Date: 20120626
  Transmission Date: 20120928
  Serious: Yes (Hospitalization, Other)
  Sender: FDA-Public Use
  Company Number: PHHY2012MX006833

PATIENT
  Sex: Female

DRUGS (4)
  1. DIOVAN [Suspect]
     Indication: HYPERTENSION
     Dosage: 0.5 DF (320 MG), DAILY
     Dates: start: 20030101, end: 20120123
  2. DIOVAN [Suspect]
     Dosage: 320 MG, DAILY
     Dates: start: 20120123
  3. DIOVAN [Suspect]
     Dosage: 1 DF, 160 MG, DAILY
     Dates: end: 20120201
  4. INDERALICI [Concomitant]
     Indication: TREMOR
     Dosage: 1 DF, 20 MG
     Dates: start: 19900101

REACTIONS (5)
  - EYE DISORDER [None]
  - WRONG TECHNIQUE IN DRUG USAGE PROCESS [None]
  - BLOOD PRESSURE INCREASED [None]
  - DIZZINESS [None]
  - DRUG INEFFECTIVE [None]
